FAERS Safety Report 5332143-2 (Version None)
Quarter: 2007Q2

REPORT INFORMATION
  Report Type: 
  Country: None (occurrence: None)
  Receive Date: 20070523
  Receipt Date: 20070517
  Transmission Date: 20071010
  Serious: Yes (Life-Threatening)
  Sender: FDA-Public Use
  Company Number: IT-ROCHE-498036

PATIENT
  Age: 68 Year
  Sex: Male

DRUGS (2)
  1. TORADOL [Suspect]
     Indication: POSTOPERATIVE ANALGESIA
     Dosage: DOSE RPTD AS 1XOD
     Route: 042
     Dates: start: 20070419, end: 20070419
  2. ZANTAC [Suspect]
     Indication: DRUG USE FOR UNKNOWN INDICATION
     Dosage: DOSE RPTD AS 1XOD
     Route: 042
     Dates: start: 20070419, end: 20070419

REACTIONS (2)
  - DYSPNOEA [None]
  - SUFFOCATION FEELING [None]
